FAERS Safety Report 17482404 (Version 1)
Quarter: 2020Q1

REPORT INFORMATION
  Report Type: Spontaneous
  Country: US (occurrence: US)
  Receive Date: 20200302
  Receipt Date: 20200302
  Transmission Date: 20200409
  Serious: No
  Sender: FDA-Public Use
  Company Number: US-MYLANLABS-2020M1020333

PATIENT
  Sex: Male
  Weight: 50 kg

DRUGS (6)
  1. FENTANYL. [Suspect]
     Active Substance: FENTANYL
     Indication: PAIN
  2. FENTANYL. [Suspect]
     Active Substance: FENTANYL
     Indication: MYALGIA
     Dosage: 75 MICROGRAM, QH (75 MCG/HR.)
     Route: 062
  3. IMITREX [Concomitant]
     Active Substance: SUMATRIPTAN SUCCINATE
     Indication: PRODUCT USED FOR UNKNOWN INDICATION
     Dosage: 100 MILLIGRAM (OCCASIONALLY )
  4. FENTANYL. [Suspect]
     Active Substance: FENTANYL
     Indication: HEADACHE
  5. FENTANYL. [Suspect]
     Active Substance: FENTANYL
     Indication: ARTHRALGIA
  6. BOTOX [Concomitant]
     Active Substance: ONABOTULINUMTOXINA
     Indication: MIGRAINE
     Dosage: UNK

REACTIONS (1)
  - Drug ineffective [Not Recovered/Not Resolved]
